FAERS Safety Report 24689457 (Version 1)
Quarter: 2024Q4

REPORT INFORMATION
  Report Type: Spontaneous
  Country: US (occurrence: US)
  Receive Date: 20241203
  Receipt Date: 20241203
  Transmission Date: 20250115
  Serious: Yes (Other)
  Sender: AUROBINDO
  Company Number: US-AUROBINDO-AUR-APL-2024-058061

PATIENT
  Age: 50 Year
  Sex: Male

DRUGS (2)
  1. POLYETHYLENE GLYCOL [Suspect]
     Active Substance: POLYETHYLENE GLYCOL
     Indication: Bowel preparation
     Dosage: 4L IN THE EVENING, 2L IN THE EVENING AND POLYETHYLENE-GLYCOL 2L IN OVERNIGHT
     Route: 065
  2. POLYETHYLENE GLYCOL [Suspect]
     Active Substance: POLYETHYLENE GLYCOL
     Dosage: 6L PREPARATION WITHOUT CLEAR STOOLS.
     Route: 065

REACTIONS (2)
  - Acute respiratory failure [Unknown]
  - Pulmonary oedema [Unknown]
